FAERS Safety Report 16361342 (Version 2)
Quarter: 2019Q3

REPORT INFORMATION
  Report Type: Spontaneous
  Country: US (occurrence: US)
  Receive Date: 20190528
  Receipt Date: 20190704
  Transmission Date: 20191004
  Serious: Yes (Life-Threatening, Hospitalization, Other)
  Sender: FDA-Public Use
  Company Number: US-PFIZER INC-2019212358

PATIENT
  Age: 31 Year
  Sex: Female

DRUGS (20)
  1. CYANOCOBALAMIN. [Concomitant]
     Active Substance: CYANOCOBALAMIN
     Indication: PERNICIOUS ANAEMIA
     Dosage: UNK
  2. METHOTREXATE SODIUM. [Suspect]
     Active Substance: METHOTREXATE SODIUM
     Indication: RHINITIS ALLERGIC
  3. ISONIAZID. [Suspect]
     Active Substance: ISONIAZID
     Indication: LATENT TUBERCULOSIS
     Dosage: UNK
  4. PREDNISONE. [Suspect]
     Active Substance: PREDNISONE
     Indication: ALOPECIA AREATA
     Dosage: UNK (TAPERING DOSES)
  5. METHOTREXATE SODIUM. [Suspect]
     Active Substance: METHOTREXATE SODIUM
     Indication: ALOPECIA AREATA
  6. METHOTREXATE SODIUM. [Suspect]
     Active Substance: METHOTREXATE SODIUM
     Indication: PERNICIOUS ANAEMIA
  7. METHOTREXATE SODIUM. [Suspect]
     Active Substance: METHOTREXATE SODIUM
     Indication: ECZEMA
  8. ISONIAZID. [Suspect]
     Active Substance: ISONIAZID
     Indication: DERMATITIS CONTACT
  9. ISONIAZID. [Suspect]
     Active Substance: ISONIAZID
     Indication: RHINITIS ALLERGIC
  10. ISONIAZID. [Suspect]
     Active Substance: ISONIAZID
     Indication: ECZEMA
  11. ISONIAZID. [Suspect]
     Active Substance: ISONIAZID
     Indication: ALOPECIA AREATA
  12. PYRIDOXINE [Suspect]
     Active Substance: PYRIDOXINE
     Indication: RHINITIS ALLERGIC
  13. PYRIDOXINE [Suspect]
     Active Substance: PYRIDOXINE
     Indication: ALOPECIA AREATA
  14. METHOTREXATE SODIUM. [Suspect]
     Active Substance: METHOTREXATE SODIUM
     Indication: DERMATITIS CONTACT
     Dosage: UNK
  15. METHOTREXATE SODIUM. [Suspect]
     Active Substance: METHOTREXATE SODIUM
     Indication: LATENT TUBERCULOSIS
  16. ISONIAZID. [Suspect]
     Active Substance: ISONIAZID
     Indication: PERNICIOUS ANAEMIA
  17. PYRIDOXINE [Suspect]
     Active Substance: PYRIDOXINE
     Indication: PERNICIOUS ANAEMIA
     Dosage: UNK
  18. PYRIDOXINE [Suspect]
     Active Substance: PYRIDOXINE
     Indication: DERMATITIS CONTACT
  19. PYRIDOXINE [Suspect]
     Active Substance: PYRIDOXINE
     Indication: ECZEMA
  20. PYRIDOXINE [Suspect]
     Active Substance: PYRIDOXINE
     Indication: LATENT TUBERCULOSIS

REACTIONS (5)
  - Drug-induced liver injury [Unknown]
  - Hepatic encephalopathy [Unknown]
  - Off label use [Unknown]
  - Product use in unapproved indication [Unknown]
  - Acute hepatic failure [Recovered/Resolved]
